FAERS Safety Report 7693263-0 (Version None)
Quarter: 2011Q3

REPORT INFORMATION
  Report Type: 
  Country: None (occurrence: None)
  Receive Date: 20110819
  Receipt Date: 20110808
  Transmission Date: 20111222
  Serious: Yes (Hospitalization, Other)
  Sender: FDA-Public Use
  Company Number: PHHY2011FR59181

PATIENT
  Sex: Male
  Weight: 90 kg

DRUGS (14)
  1. DEPAKENE [Concomitant]
     Indication: EPILEPSY
     Dosage: 500 MG, BID
  2. OSTRAM [Concomitant]
     Dosage: 1 DF, QD
  3. ASPEGIC 325 [Concomitant]
     Dosage: 100 MG, UNK
  4. ONBREZ [Suspect]
     Indication: CHRONIC OBSTRUCTIVE PULMONARY DISEASE
     Dosage: 150 UG, UNK
     Dates: start: 20110623
  5. LASIX [Concomitant]
     Dosage: 40 MG, QID
  6. ONBREZ [Suspect]
     Dosage: 10 CAPSULES
     Dates: start: 20110701
  7. KEPPRA [Concomitant]
     Dosage: 500 MG, BID
  8. ALFUZOSIN HCL [Concomitant]
     Dosage: 10 MG, QD
  9. OMEPRAZOLE [Concomitant]
     Dosage: 1 DF, QD
  10. KEPPRA [Concomitant]
     Indication: EPILEPSY
     Dosage: 250 MG, BID
  11. CLONAZEPAM [Concomitant]
     Dosage: 8 DRP, QD
  12. DEBRIDAT [Concomitant]
     Indication: CONSTIPATION
     Dosage: 2 DF, TID
  13. DUPHALAC [Concomitant]
     Indication: CONSTIPATION
     Dosage: 4 DF, QD
  14. DIPIPERON [Concomitant]
     Dosage: 15 DRP, QD

REACTIONS (4)
  - VENTRICULAR TACHYCARDIA [None]
  - ARRHYTHMIA [None]
  - RESPIRATORY DISORDER [None]
  - OVERDOSE [None]
